FAERS Safety Report 4577052-1 (Version None)
Quarter: 2005Q1

REPORT INFORMATION
  Report Type: 
  Country: None (occurrence: None)
  Receive Date: 20050208
  Receipt Date: 20050127
  Transmission Date: 20050727
  Serious: Yes (Other)
  Sender: FDA-Public Use
  Company Number: 2005013294

PATIENT
  Age: 47 Year
  Sex: Female
  Weight: 74.8435 kg

DRUGS (3)
  1. DETROL LA [Suspect]
     Indication: HYPERTONIC BLADDER
     Dosage: 4 MG (4 MG, QD), ORAL
     Route: 048
     Dates: start: 20050101, end: 20050105
  2. MULTIVITAMINS (ASCORBIC ACID, ERGOCALCIFEROL, FOLIC ACID, NICOTINAMIDE [Concomitant]
  3. ALL OTEHR NON-THERAPEUTIC PRODUCT (ALL OTHER NON-THERAPEUTIC PRODUCTS [Concomitant]

REACTIONS (1)
  - HYPHAEMA [None]
